FAERS Safety Report 20723305 (Version 1)
Quarter: 2022Q2

REPORT INFORMATION
  Report Type: Spontaneous
  Country: US (occurrence: US)
  Receive Date: 20220419
  Receipt Date: 20220419
  Transmission Date: 20220721
  Serious: Yes (Death, Life-Threatening, Hospitalization, Other)
  Sender: FDA-Public Use
  Company Number: US-MLMSERVICE-20220404-3480910-1

PATIENT
  Age: 52 Year
  Sex: Female

DRUGS (2)
  1. METHOTREXATE [Suspect]
     Active Substance: METHOTREXATE
     Indication: Prophylaxis against graft versus host disease
     Dosage: UNK
     Route: 065
  2. TACROLIMUS [Suspect]
     Active Substance: TACROLIMUS
     Indication: Prophylaxis against graft versus host disease
     Dosage: UNK
     Route: 065

REACTIONS (11)
  - Klebsiella bacteraemia [Fatal]
  - Bacteraemia [Fatal]
  - Sepsis [Fatal]
  - Metabolic encephalopathy [Fatal]
  - Mouth haemorrhage [Fatal]
  - Bone marrow failure [Fatal]
  - Stomatitis [Fatal]
  - Hypertransaminasaemia [Fatal]
  - Acute kidney injury [Fatal]
  - Transplant failure [Fatal]
  - Diarrhoea [Fatal]
